FAERS Safety Report 4840347-8 (Version None)
Quarter: 2005Q4

REPORT INFORMATION
  Report Type: 
  Country: None (occurrence: None)
  Receive Date: 20051025
  Receipt Date: 20050111
  Transmission Date: 20060501
  Serious: No
  Sender: FDA-Public Use
  Company Number: 2005-00167

PATIENT
  Age: 69 Year
  Sex: Male

DRUGS (2)
  1. TUBERSOL [Suspect]
     Indication: TUBERCULIN TEST
     Dosage: (0.1 ML),I.D.
     Route: 023
     Dates: start: 20041206
  2. TUBERCULIN PPD (M) 5 TU [Suspect]
     Indication: TUBERCULIN TEST
     Dosage: (0.1 ML),I.D.
     Route: 023
     Dates: start: 20041217

REACTIONS (1)
  - TUBERCULIN TEST POSITIVE [None]
